FAERS Safety Report 7329944-8 (Version None)
Quarter: 2011Q1

REPORT INFORMATION
  Report Type: 
  Country: None (occurrence: None)
  Receive Date: 20110303
  Receipt Date: 20110223
  Transmission Date: 20110831
  Serious: Yes (Hospitalization)
  Sender: FDA-Public Use
  Company Number: IE-AMGEN-IRLSP2011010571

PATIENT
  Age: 63 Year
  Sex: Male

DRUGS (8)
  1. GALFER [Concomitant]
  2. PROTIUM [Concomitant]
  3. ARANESP [Suspect]
     Indication: RENAL FAILURE CHRONIC
     Dosage: 40 A?G, 2 TIMES/WK
     Route: 058
  4. ASPIRIN [Concomitant]
  5. PLAVIX [Concomitant]
  6. CALCICHEW [Concomitant]
  7. LIPITOR [Concomitant]
  8. DIAMICRON [Concomitant]

REACTIONS (1)
  - HOSPITALISATION [None]
